FAERS Safety Report 20090626 (Version 2)
Quarter: 2021Q4

REPORT INFORMATION
  Report Type: Spontaneous
  Country: GB (occurrence: GB)
  Receive Date: 20211119
  Receipt Date: 20211124
  Transmission Date: 20220303
  Serious: Yes (Other)
  Sender: FDA-Public Use
  Company Number: None

PATIENT
  Age: 71 Year
  Sex: Male

DRUGS (4)
  1. ADALIMUMAB [Suspect]
     Active Substance: ADALIMUMAB
     Indication: Psoriatic arthropathy
     Dosage: UNK
     Route: 065
  2. ADALIMUMAB [Suspect]
     Active Substance: ADALIMUMAB
     Dosage: 40 MG, Q2W
     Route: 058
     Dates: start: 20210326
  3. DEXAMETHASONE [Suspect]
     Active Substance: DEXAMETHASONE
     Indication: Product used for unknown indication
     Dosage: UNK
     Route: 065
  4. ZOLADEX [Concomitant]
     Active Substance: GOSERELIN ACETATE
     Indication: Product used for unknown indication
     Dosage: UNK
     Route: 065

REACTIONS (13)
  - Prostate cancer [Unknown]
  - Pain in extremity [Unknown]
  - Nervous system disorder [Unknown]
  - Pain [Unknown]
  - Sleep disorder [Unknown]
  - Pollakiuria [Unknown]
  - Mouth swelling [Unknown]
  - Swollen tongue [Unknown]
  - Tremor [Unknown]
  - Injection site pain [Unknown]
  - Muscle spasms [Unknown]
  - Wrong technique in product usage process [Unknown]
  - Therapeutic product effect incomplete [Unknown]
